FAERS Safety Report 8178763-1 (Version None)
Quarter: 2012Q1

REPORT INFORMATION
  Report Type: 
  Country: None (occurrence: None)
  Receive Date: 20120301
  Receipt Date: 20120301
  Transmission Date: 20120608
  Serious: Yes (Other)
  Sender: FDA-Public Use
  Company Number: None

PATIENT
  Age: 36 Year
  Sex: Male
  Weight: 86.182 kg

DRUGS (1)
  1. EFUDEX [Suspect]

REACTIONS (5)
  - GASTRIC DISORDER [None]
  - PAIN [None]
  - TREMOR [None]
  - GASTROINTESTINAL HAEMORRHAGE [None]
  - TOXICITY TO VARIOUS AGENTS [None]
